FAERS Safety Report 25634209 (Version 2)
Quarter: 2025Q3

REPORT INFORMATION
  Report Type: Spontaneous
  Country: US (occurrence: US)
  Receive Date: 20250801
  Receipt Date: 20250812
  Transmission Date: 20251021
  Serious: Yes (Other)
  Sender: ABBVIE
  Company Number: US-ABBVIE-6397491

PATIENT
  Age: 84 Year
  Sex: Female

DRUGS (2)
  1. LUMIGAN [Suspect]
     Active Substance: BIMATOPROST
     Indication: Macular degeneration
     Route: 047
     Dates: start: 2023
  2. LUMIGAN [Suspect]
     Active Substance: BIMATOPROST
     Indication: Macular degeneration
     Route: 047
     Dates: start: 202503

REACTIONS (6)
  - Macular degeneration [Not Recovered/Not Resolved]
  - Neovascular age-related macular degeneration [Not Recovered/Not Resolved]
  - Glaucoma [Unknown]
  - Macular degeneration [Unknown]
  - Glaucoma [Not Recovered/Not Resolved]
  - Eye irritation [Recovering/Resolving]

NARRATIVE: CASE EVENT DATE: 20250101
